FAERS Safety Report 9051016 (Version 2)
Quarter: 2013Q1

REPORT INFORMATION
  Report Type: Spontaneous
  Country: ES (occurrence: ES)
  Receive Date: 20130205
  Receipt Date: 20130219
  Transmission Date: 20140127
  Serious: Yes (Hospitalization, Other)
  Sender: FDA-Public Use
  Company Number: ES-PFIZER INC-2013044367

PATIENT
  Age: 71 Year
  Sex: Male

DRUGS (6)
  1. MORPHINE SULFATE [Suspect]
     Indication: PAIN
     Dosage: 30 MG, DAILY
     Route: 048
     Dates: start: 20120607, end: 20120622
  2. PREGABALIN [Interacting]
     Indication: PAIN
     Dosage: 25 MG, UNK
     Route: 049
     Dates: start: 201201
  3. ESERTIA [Interacting]
     Indication: DEPRESSION
     Dosage: 20 MG, 2X/DAY
     Route: 048
     Dates: start: 201201
  4. ZOMORPH [Interacting]
     Indication: PERIPHERAL ISCHAEMIA
     Dosage: 60 MG, DAILY
     Route: 048
     Dates: start: 20120607, end: 20120622
  5. HUMALOG MIX PEN [Concomitant]
     Indication: TYPE 2 DIABETES MELLITUS
     Dosage: UNK
     Route: 058
     Dates: start: 201201
  6. LANTUS [Concomitant]
     Indication: TYPE 2 DIABETES MELLITUS
     Dosage: 32 IU, 1X/DAY
     Route: 058
     Dates: start: 201201

REACTIONS (2)
  - Drug interaction [Recovered/Resolved]
  - Urinary retention [Recovered/Resolved]
